FAERS Safety Report 7751908-0 (Version None)
Quarter: 2011Q3

REPORT INFORMATION
  Report Type: 
  Country: None (occurrence: None)
  Receive Date: 20110914
  Receipt Date: 20110914
  Transmission Date: 20111222
  Serious: No
  Sender: FDA-Public Use
  Company Number: None

PATIENT
  Sex: Female
  Weight: 66.6 kg

DRUGS (6)
  1. PREDNISONE [Suspect]
     Dosage: 500 MG
  2. DOXORUBICIN HYDROCHLORIDE [Suspect]
     Dosage: 240 MG
  3. CYCLOPHOSPHAMIDE [Suspect]
     Dosage: 1040 MG
  4. VINCRISTINE SULFATE [Suspect]
     Dosage: 1.28 MG
  5. RITUXIMAB (MOAB C2B8 ANTI CD20, CHIMERIC) [Suspect]
     Dosage: 600 MG
  6. ETOPOSIDE [Suspect]
     Dosage: 240 MG

REACTIONS (1)
  - ACUTE MYELOID LEUKAEMIA [None]
